FAERS Safety Report 4539111-9 (Version None)
Quarter: 2005Q1

REPORT INFORMATION
  Report Type: 
  Country: None (occurrence: None)
  Receive Date: 20041223
  Receipt Date: 20040923
  Transmission Date: 20050727
  Serious: No
  Sender: FDA-Public Use
  Company Number: US-JNJFOC-20040909138

PATIENT
  Age: 18 Year
  Sex: Female
  Weight: 81.6475 kg

DRUGS (5)
  1. ORTHO EVRA [Suspect]
     Indication: CONTRACEPTION
     Dosage: 1 DOSE (S)M 3 IN 4 WEEK, TRANSDERMAL
     Route: 062
     Dates: start: 20040912
  2. RHINOCORT [Concomitant]
  3. POLYMYXIN (POLYMYXIN B) DROPS [Concomitant]
  4. ZADITOR (KETOTIFEN) DROPS [Concomitant]
  5. SUDAFED 12 HOUR [Concomitant]

REACTIONS (1)
  - METRORRHAGIA [None]
